FAERS Safety Report 7282909-7 (Version None)
Quarter: 2011Q1

REPORT INFORMATION
  Report Type: 
  Country: None (occurrence: None)
  Receive Date: 20110128
  Receipt Date: 20110120
  Transmission Date: 20110831
  Serious: Yes (Death)
  Sender: FDA-Public Use
  Company Number: 1000018311

PATIENT
  Age: 49 Year
  Sex: Female

DRUGS (7)
  1. DILTIAZEM [Suspect]
  2. HYDROCHLOROTHIAZIDE [Suspect]
  3. AMOXAPINE [Suspect]
  4. LORAZEPAM [Suspect]
  5. ACETAMINOPHEN [Suspect]
  6. ANTICHOLINERGIC (ANTICHOLINERGIC) [Suspect]
  7. ANTICHOLINERGIC (ANTICHOLINERGIC) [Suspect]

REACTIONS (2)
  - MULTIPLE DRUG OVERDOSE INTENTIONAL [None]
  - COMPLETED SUICIDE [None]
